FAERS Safety Report 22293873 (Version 1)
Quarter: 2023Q2

REPORT INFORMATION
  Report Type: Spontaneous
  Country: US (occurrence: US)
  Receive Date: 20230508
  Receipt Date: 20230508
  Transmission Date: 20230722
  Serious: No
  Sender: FDA-Public Use
  Company Number: US-APOTEX-2023AP006264

PATIENT
  Sex: Female

DRUGS (8)
  1. BORTEZOMIB [Suspect]
     Active Substance: BORTEZOMIB
     Indication: Tubulointerstitial nephritis
     Dosage: 1.5 MILLIGRAM/SQ. METER, Q.O.WK.
     Route: 058
  2. BORTEZOMIB [Suspect]
     Active Substance: BORTEZOMIB
     Indication: Plasma cells present
  3. DEXAMETHASONE [Concomitant]
     Active Substance: DEXAMETHASONE
     Indication: Tubulointerstitial nephritis
     Dosage: 40 MILLIGRAM, ON DAY 1 (WEEK 67-CURRENT)
     Route: 042
  4. DEXAMETHASONE [Concomitant]
     Active Substance: DEXAMETHASONE
     Indication: Plasma cells present
  5. DARATUMUMAB [Concomitant]
     Active Substance: DARATUMUMAB
     Indication: Plasma cells present
     Dosage: 16 MILLIGRAM/KILOGRAM, Q.O.WK. (WEEK 45-53)
     Route: 042
  6. DARATUMUMAB [Concomitant]
     Active Substance: DARATUMUMAB
     Indication: Tubulointerstitial nephritis
     Dosage: 16 MILLIGRAM/KILOGRAM, EVERY 4 WEEKS (WEEK 54 TO CURRENT)
     Route: 042
  7. DEXAMETHASONE [Concomitant]
     Active Substance: DEXAMETHASONE
     Indication: Tubulointerstitial nephritis
     Dosage: 40 MILLIGRAM, ON DAY 8, 15, 22 OF EACH CYCLE (WEEK 67-CURRENT)
     Route: 048
  8. DEXAMETHASONE [Concomitant]
     Active Substance: DEXAMETHASONE
     Indication: Plasma cells present

REACTIONS (4)
  - Drug intolerance [Unknown]
  - Musculoskeletal pain [Unknown]
  - Orthostatic hypotension [Unknown]
  - Diarrhoea [Unknown]
